FAERS Safety Report 9236575 (Version 2)
Quarter: 2013Q2

REPORT INFORMATION
  Report Type: Report from Study
  Country: CA (occurrence: CA)
  Receive Date: 20130417
  Receipt Date: 20130426
  Transmission Date: 20140414
  Serious: Yes (Hospitalization)
  Sender: FDA-Public Use
  Company Number: CA-ROCHE-1215100

PATIENT
  Sex: Male
  Weight: 95 kg

DRUGS (7)
  1. AVASTIN [Suspect]
     Indication: GLIOBLASTOMA
     Route: 042
     Dates: start: 20130327, end: 20130327
  2. DEXAMETHASONE [Concomitant]
  3. KEPPRA [Concomitant]
  4. CLOBAZAM [Concomitant]
  5. DOCUSATE [Concomitant]
  6. CARBAMAZEPINE [Concomitant]
  7. TYLENOL [Concomitant]
     Indication: PREMEDICATION
     Route: 048
     Dates: start: 20130327, end: 20130327

REACTIONS (1)
  - Disease progression [Not Recovered/Not Resolved]
